FAERS Safety Report 7507578-X (Version None)
Quarter: 2011Q2

REPORT INFORMATION
  Report Type: 
  Country: None (occurrence: None)
  Receive Date: 20110526
  Receipt Date: 20110223
  Transmission Date: 20111010
  Serious: No
  Sender: FDA-Public Use
  Company Number: US-MYLANLABS-2011S1003615

PATIENT
  Sex: Female

DRUGS (9)
  1. URSODIOL [Suspect]
     Route: 048
     Dates: start: 20110101
  2. ROPINIROLE [Concomitant]
  3. BUPROPION HCL [Concomitant]
  4. TRAZODONE HCL [Concomitant]
  5. BUMETANIDE [Concomitant]
  6. DILTIAZEM [Concomitant]
  7. URSODIOL [Suspect]
     Route: 048
     Dates: start: 20110101
  8. LISINOPRIL [Concomitant]
  9. LEVOTHYROXINE SODIUM [Concomitant]

REACTIONS (2)
  - DRUG INEFFECTIVE [None]
  - LIVER FUNCTION TEST ABNORMAL [None]
